FAERS Safety Report 24636384 (Version 2)
Quarter: 2025Q3

REPORT INFORMATION
  Report Type: Spontaneous
  Country: US (occurrence: US)
  Receive Date: 20241119
  Receipt Date: 20250816
  Transmission Date: 20251021
  Serious: No
  Sender: ALEXION PHARMACEUTICALS
  Company Number: US-AstraZeneca-CH-00747332A

PATIENT
  Age: 76 Year
  Sex: Male

DRUGS (1)
  1. WAINUA [Suspect]
     Active Substance: EPLONTERSEN
     Indication: Polyneuropathy
     Dates: start: 20240329, end: 20241016

REACTIONS (2)
  - Acquired ATTR amyloidosis [Unknown]
  - Therapy change [Unknown]

NARRATIVE: CASE EVENT DATE: 20240701
